FAERS Safety Report 17754232 (Version 1)
Quarter: 2020Q2

REPORT INFORMATION
  Report Type: Spontaneous
  Country: GB (occurrence: GB)
  Receive Date: 20200507
  Receipt Date: 20200507
  Transmission Date: 20200714
  Serious: Yes (Disabling)
  Sender: FDA-Public Use
  Company Number: GB-TEVA-2020-GB-1230355

PATIENT
  Age: 17 Year
  Sex: Female
  Weight: 49 kg

DRUGS (5)
  1. SALBUTAMOL [Concomitant]
     Active Substance: ALBUTEROL
     Dosage: 2 DOSAGE FORMS
     Dates: start: 20190726
  2. FLUTIFORM [Concomitant]
     Active Substance: FLUTICASONE PROPIONATE\FORMOTEROL FUMARATE
     Indication: ASTHMA
     Dosage: 125,  4 DOSAGE FORMS
     Dates: start: 20190726, end: 20200417
  3. FOSTAIR [Concomitant]
     Active Substance: BECLOMETHASONE\FORMOTEROL
     Dosage: 4 DOSAGE FORMS
     Dates: start: 20200417
  4. GEDAREL [Concomitant]
     Dosage: 1 DOSAGE FORM AS DIRECTED.
     Dates: start: 20200310
  5. MONTELUKAST [Suspect]
     Active Substance: MONTELUKAST SODIUM
     Dosage: 10 MILLIGRAM DAILY; 10 MG AT NIGHT.
     Dates: start: 20200407

REACTIONS (2)
  - Decreased appetite [Recovering/Resolving]
  - Somnolence [Recovering/Resolving]

NARRATIVE: CASE EVENT DATE: 20200412
